FAERS Safety Report 8226026-8 (Version None)
Quarter: 2012Q1

REPORT INFORMATION
  Report Type: 
  Country: None (occurrence: None)
  Receive Date: 20120321
  Receipt Date: 20120316
  Transmission Date: 20120608
  Serious: No
  Sender: FDA-Public Use
  Company Number: US-PFIZER INC-2012049376

PATIENT
  Sex: Female
  Weight: 57.596 kg

DRUGS (1)
  1. PRISTIQ [Suspect]
     Indication: DEPRESSION
     Dosage: 50 MG, DAILY
     Dates: start: 20090801

REACTIONS (3)
  - FEELING ABNORMAL [None]
  - INFLUENZA [None]
  - DEPRESSION [None]
